FAERS Safety Report 15459140 (Version 1)
Quarter: 2018Q4

REPORT INFORMATION
  Report Type: Spontaneous
  Country: US (occurrence: US)
  Receive Date: 20181003
  Receipt Date: 20181003
  Transmission Date: 20190204
  Serious: No
  Sender: FDA-Public Use
  Company Number: US-SA-2017SA050317

PATIENT
  Sex: Female

DRUGS (1)
  1. GOLD BOND EXTRA STRENGTH LOTION [Suspect]
     Active Substance: DIMETHICONE\MENTHOL
     Dosage: UNK UNK,UNK
     Route: 065
     Dates: start: 20170320

REACTIONS (4)
  - Erythema [Unknown]
  - Drug hypersensitivity [Unknown]
  - Rash [Unknown]
  - Swelling [Unknown]
